APPROVED DRUG PRODUCT: LIDOCAINE HYDROCHLORIDE
Active Ingredient: LIDOCAINE HYDROCHLORIDE
Strength: 2%
Dosage Form/Route: INJECTABLE;INJECTION
Application: A212821 | Product #002 | TE Code: AP
Applicant: HUONS CO LTD
Approved: Jun 15, 2023 | RLD: No | RS: No | Type: RX